FAERS Safety Report 24612759 (Version 2)
Quarter: 2024Q4

REPORT INFORMATION
  Report Type: Report from Study
  Country: US (occurrence: US)
  Receive Date: 20241113
  Receipt Date: 20241203
  Transmission Date: 20250115
  Serious: Yes (Other)
  Sender: ABBVIE
  Company Number: US-ABBVIE-5999759

PATIENT
  Age: 70 Year
  Sex: Female

DRUGS (1)
  1. CREON [Suspect]
     Active Substance: PANCRELIPASE AMYLASE\PANCRELIPASE LIPASE\PANCRELIPASE PROTEASE
     Indication: Product used for unknown indication
     Dosage: UNKNOWN
     Route: 048
     Dates: start: 20230105

REACTIONS (5)
  - Volvulus [Recovered/Resolved]
  - Gastrointestinal tube insertion [Unknown]
  - Sepsis [Recovering/Resolving]
  - Hernia [Recovered/Resolved]
  - Buttock injury [Recovering/Resolving]

NARRATIVE: CASE EVENT DATE: 20240801
